FAERS Safety Report 10975946 (Version 3)
Quarter: 2017Q2

REPORT INFORMATION
  Report Type: Spontaneous
  Country: US (occurrence: US)
  Receive Date: 20150401
  Receipt Date: 20170406
  Transmission Date: 20170829
  Serious: Yes (Other)
  Sender: FDA-Public Use
  Company Number: US-JNJFOC-20140217327

PATIENT
  Age: 12 Year
  Sex: Male

DRUGS (2)
  1. ABILIFY [Concomitant]
     Active Substance: ARIPIPRAZOLE
     Indication: DEPRESSION
     Dosage: 2 MG, 5 MG, 10 MG
     Route: 065
     Dates: start: 201402
  2. RISPERDAL [Suspect]
     Active Substance: RISPERIDONE
     Indication: ANGER
     Dosage: 0.5 MG, 1 MG, 2MG, 3MG
     Route: 048
     Dates: start: 2006, end: 2014

REACTIONS (7)
  - Tardive dyskinesia [Unknown]
  - Abnormal weight gain [Unknown]
  - Blood prolactin increased [Unknown]
  - Gynaecomastia [Unknown]
  - Emotional distress [Unknown]
  - Product use in unapproved indication [Unknown]
  - Dyskinesia [Unknown]

NARRATIVE: CASE EVENT DATE: 20120607
